FAERS Safety Report 17682658 (Version 2)
Quarter: 2021Q1

REPORT INFORMATION
  Report Type: Spontaneous
  Country: US (occurrence: US)
  Receive Date: 20200419
  Receipt Date: 20210213
  Transmission Date: 20210419
  Serious: No
  Sender: FDA-Public Use
  Company Number: US-TEVA-2020-US-1222174

PATIENT
  Age: 71 Year
  Sex: Male
  Weight: 74.1 kg

DRUGS (1)
  1. ALBUTEROL SULFATE HFA PRASCO [Suspect]
     Active Substance: ALBUTEROL SULFATE
     Route: 065
     Dates: start: 202001

REACTIONS (5)
  - Inappropriate schedule of product administration [Unknown]
  - Therapy interrupted [Unknown]
  - Wheezing [Unknown]
  - Wrong technique in product usage process [Unknown]
  - Drug delivery system malfunction [Unknown]

NARRATIVE: CASE EVENT DATE: 202001
